FAERS Safety Report 4518977-2 (Version None)
Quarter: 2004Q4

REPORT INFORMATION
  Report Type: 
  Country: None (occurrence: None)
  Receive Date: 20041203
  Receipt Date: 20041203
  Transmission Date: 20050328
  Serious: Yes (Other)
  Sender: FDA-Public Use
  Company Number: None

PATIENT
  Age: 40 Year
  Sex: Female
  Weight: 79.3795 kg

DRUGS (1)
  1. CYMBALTA [Suspect]
     Indication: DEPRESSION
     Dosage: 30  MG BID ORAL
     Route: 048
     Dates: start: 20041101, end: 20041117

REACTIONS (2)
  - CONTUSION [None]
  - GINGIVAL BLEEDING [None]
